FAERS Safety Report 15905563 (Version 1)
Quarter: 2019Q1

REPORT INFORMATION
  Report Type: Spontaneous
  Country: US (occurrence: US)
  Receive Date: 20190111
  Receipt Date: 20190111
  Transmission Date: 20190417
  Serious: No
  Sender: FDA-Public Use
  Company Number: None

PATIENT
  Age: 48 Year
  Sex: Female

DRUGS (1)
  1. TREMFYA [Suspect]
     Active Substance: GUSELKUMAB
     Dates: start: 20180731

REACTIONS (3)
  - Skin disorder [None]
  - Pruritus [None]
  - Condition aggravated [None]

NARRATIVE: CASE EVENT DATE: 20181114
